FAERS Safety Report 9573745 (Version 1)
Quarter: 2013Q4

REPORT INFORMATION
  Report Type: Report from Study
  Country: CA (occurrence: CA)
  Receive Date: 20131001
  Receipt Date: 20131001
  Transmission Date: 20140711
  Serious: Yes (Other)
  Sender: FDA-Public Use
  Company Number: CA-JNJFOC-20130914895

PATIENT
  Age: 48 Year
  Sex: Female
  Weight: 73 kg

DRUGS (19)
  1. REMICADE [Suspect]
     Indication: CROHN^S DISEASE
     Route: 042
     Dates: start: 20130713
  2. REMICADE [Suspect]
     Indication: CROHN^S DISEASE
     Route: 042
     Dates: start: 201303
  3. SODIUM BICARBONATE [Concomitant]
     Route: 065
  4. ALFACALCIDOL [Concomitant]
     Route: 065
  5. AMLODIPINE [Concomitant]
     Route: 065
  6. OMEPRAZOLE [Concomitant]
     Route: 065
  7. POTASSIUM [Concomitant]
     Route: 065
  8. RENA-VITE [Concomitant]
     Route: 065
  9. METOPROLOL [Concomitant]
     Route: 065
  10. CALCIUM [Concomitant]
     Route: 065
  11. MAGNESIUM [Concomitant]
     Route: 065
  12. ACIDOPHILUS [Concomitant]
     Route: 065
  13. EVENING PRIMROSE OIL [Concomitant]
     Route: 065
  14. B 12 [Concomitant]
     Route: 065
  15. METHOTREXATE [Concomitant]
     Route: 065
  16. FOLIC ACID [Concomitant]
     Route: 065
  17. SALBUTAMOL [Concomitant]
     Dosage: AS NECESSARY
     Route: 065
  18. TYLENOL [Concomitant]
     Dosage: AS NECESSARY
     Route: 065
  19. FUCIDIN [Concomitant]
     Route: 061

REACTIONS (3)
  - Intestinal stenosis [Unknown]
  - Vomiting [Recovered/Resolved]
  - Nausea [Recovered/Resolved]
